FAERS Safety Report 18986524 (Version 1)
Quarter: 2021Q1

REPORT INFORMATION
  Report Type: Spontaneous
  Country: US (occurrence: US)
  Receive Date: 20210309
  Receipt Date: 20210309
  Transmission Date: 20210420
  Serious: Yes (Hospitalization)
  Sender: FDA-Public Use
  Company Number: None

PATIENT
  Age: 17 Year
  Sex: Female
  Weight: 61.5 kg

DRUGS (6)
  1. PREDNISOLONE. [Suspect]
     Active Substance: PREDNISOLONE
     Dates: end: 20210223
  2. VINCRISTINE SULFATE. [Suspect]
     Active Substance: VINCRISTINE SULFATE
     Dates: end: 20210128
  3. ONCASPAR [Suspect]
     Active Substance: PEGASPARGASE
     Dosage: ?          OTHER DOSE:4100 UNIT;?
     Dates: end: 20210125
  4. CYTARABINE. [Suspect]
     Active Substance: CYTARABINE
     Dates: end: 20210121
  5. DAUNORUBICIN [Suspect]
     Active Substance: DAUNORUBICIN
     Dates: end: 20210128
  6. METHOTREXATE. [Suspect]
     Active Substance: METHOTREXATE
     Dates: end: 20210125

REACTIONS (12)
  - Haemodialysis [None]
  - Pleural effusion [None]
  - Interstitial lung disease [None]
  - Pseudomonas test positive [None]
  - Unresponsive to stimuli [None]
  - Coagulopathy [None]
  - Hypotension [None]
  - Pneumonia [None]
  - Sepsis [None]
  - Acute kidney injury [None]
  - Oxygen saturation decreased [None]
  - Fluid overload [None]

NARRATIVE: CASE EVENT DATE: 20210203
